FAERS Safety Report 21294978 (Version 3)
Quarter: 2022Q4

REPORT INFORMATION
  Report Type: Report from Study
  Country: US (occurrence: US)
  Receive Date: 20220905
  Receipt Date: 20221121
  Transmission Date: 20230112
  Serious: Yes (Other)
  Sender: FDA-Public Use
  Company Number: US-BRISTOL-MYERS SQUIBB COMPANY-2022-093207

PATIENT
  Age: 67 Year
  Sex: Male
  Weight: 98.4 kg

DRUGS (14)
  1. REVLIMID [Suspect]
     Active Substance: LENALIDOMIDE
     Indication: Plasma cell myeloma
     Dosage: DAILY FOR 21 DAYS AND 7 DAYS OFF, 21 OF 28 DAYS. A3738A (EXP: 31-AUG-2024
     Route: 048
     Dates: start: 201905
  2. REVLIMID [Suspect]
     Active Substance: LENALIDOMIDE
     Indication: Monoclonal gammopathy
  3. METFORMIN [Concomitant]
     Active Substance: METFORMIN HYDROCHLORIDE
     Indication: Product used for unknown indication
     Route: 065
  4. AMLODIPINE BESYLATE [Concomitant]
     Active Substance: AMLODIPINE BESYLATE
     Indication: Product used for unknown indication
     Route: 065
  5. CARVEDILOL [Concomitant]
     Active Substance: CARVEDILOL
     Indication: Product used for unknown indication
     Route: 065
  6. METFORMIN HYDROCHLORIDE [Concomitant]
     Active Substance: METFORMIN HYDROCHLORIDE
     Indication: Product used for unknown indication
     Route: 065
  7. ATORVASTATIN CALCIUM [Concomitant]
     Active Substance: ATORVASTATIN CALCIUM
     Indication: Product used for unknown indication
     Route: 065
  8. QUINAPRIL [Concomitant]
     Active Substance: QUINAPRIL
     Indication: Product used for unknown indication
     Route: 065
  9. METHYLPREDNISOLONE [Concomitant]
     Active Substance: METHYLPREDNISOLONE
     Indication: Product used for unknown indication
     Route: 065
  10. ASPIRIN [Concomitant]
     Active Substance: ASPIRIN
     Indication: Product used for unknown indication
     Route: 065
  11. MUCINEX D [Concomitant]
     Active Substance: GUAIFENESIN\PSEUDOEPHEDRINE HYDROCHLORIDE
     Indication: Product used for unknown indication
     Dosage: 600 MG-6
     Route: 065
  12. XANAX [Concomitant]
     Active Substance: ALPRAZOLAM
     Indication: Product used for unknown indication
     Dosage: 600 MG-6
     Route: 065
  13. ZOLEDRONIC ACID [Concomitant]
     Active Substance: ZOLEDRONIC ACID
     Indication: Product used for unknown indication
     Dosage: 4 MG/10
     Route: 065
  14. ACYCLOVIR [Concomitant]
     Active Substance: ACYCLOVIR
     Indication: Product used for unknown indication
     Route: 065

REACTIONS (16)
  - Rash papular [Unknown]
  - Pneumonia [Unknown]
  - Decreased appetite [Unknown]
  - Diarrhoea [Unknown]
  - Taste disorder [Unknown]
  - Fatigue [Unknown]
  - Dyspnoea [Unknown]
  - Anaemia [Unknown]
  - Weight decreased [Unknown]
  - Musculoskeletal discomfort [Unknown]
  - Back disorder [Unknown]
  - Dizziness [Unknown]
  - Vomiting [Unknown]
  - Ear disorder [Unknown]
  - Protein total increased [Unknown]
  - Tumour marker increased [Unknown]

NARRATIVE: CASE EVENT DATE: 20220101
